FAERS Safety Report 15804937 (Version 2)
Quarter: 2019Q1

REPORT INFORMATION
  Report Type: Report from Study
  Country: None (occurrence: BG)
  Receive Date: 20190110
  Receipt Date: 20190128
  Transmission Date: 20190417
  Serious: Yes (Hospitalization)
  Sender: FDA-Public Use
  Company Number: BG-ABBVIE-19S-022-2617788-00

PATIENT
  Sex: Female

DRUGS (1)
  1. DUODOPA [Suspect]
     Active Substance: CARBIDOPA\LEVODOPA
     Indication: PARKINSON^S DISEASE
     Dosage: MD- 7.0 ML CR- 2.0 ML/H EX- 1 ML
     Route: 050
     Dates: start: 20180417

REACTIONS (1)
  - Bladder neoplasm [Not Recovered/Not Resolved]
